FAERS Safety Report 7773253-X (Version None)
Quarter: 2011Q3

REPORT INFORMATION
  Report Type: 
  Country: None (occurrence: None)
  Receive Date: 20110922
  Receipt Date: 20110913
  Transmission Date: 20111222
  Serious: Yes (Other)
  Sender: FDA-Public Use
  Company Number: AU-GENENTECH-324551

PATIENT
  Sex: Male

DRUGS (4)
  1. LUCENTIS [Suspect]
     Route: 031
  2. LUCENTIS [Suspect]
     Indication: PRODUCT USED FOR UNKNOWN INDICATION
     Route: 031
  3. LUCENTIS [Suspect]
     Route: 031
  4. LUCENTIS [Suspect]
     Dosage: UNK
     Route: 031
     Dates: start: 20110110

REACTIONS (1)
  - MYOCARDIAL INFARCTION [None]
